FAERS Safety Report 25133065 (Version 2)
Quarter: 2025Q2

REPORT INFORMATION
  Report Type: Spontaneous
  Country: CN (occurrence: CN)
  Receive Date: 20250328
  Receipt Date: 20250610
  Transmission Date: 20250717
  Serious: Yes (Life-Threatening, Hospitalization, Other)
  Sender: EXELA PHARMA SCIENCES
  Company Number: CN-EXELAPHARMA-2025EXLA00027

PATIENT
  Age: 38 Year
  Sex: Female
  Weight: 49 kg

DRUGS (8)
  1. BLOXIVERZ [Suspect]
     Active Substance: NEOSTIGMINE METHYLSULFATE
     Indication: Neuromuscular blockade reversal
  2. ATROPINE [Suspect]
     Active Substance: ATROPINE
     Indication: Neuromuscular blockade reversal
  3. PENEQUININE [Concomitant]
     Active Substance: PENEQUININE
     Indication: Product used for unknown indication
     Route: 042
  4. PROPOFOL [Concomitant]
     Active Substance: PROPOFOL
     Indication: Anaesthesia
  5. SUFENTANIL [Concomitant]
     Active Substance: SUFENTANIL
     Indication: Anaesthesia
  6. CISATRACURIUM BESYLATE [Concomitant]
     Active Substance: CISATRACURIUM BESYLATE
     Indication: Anaesthesia
  7. REMIFENTANIL [Concomitant]
     Active Substance: REMIFENTANIL
     Indication: Anaesthesia
  8. SEVOFLURANE [Concomitant]
     Active Substance: SEVOFLURANE
     Indication: Anaesthesia

REACTIONS (6)
  - Torsade de pointes [Recovered/Resolved]
  - Sinus arrhythmia [Recovered/Resolved]
  - Electrocardiogram QT prolonged [Recovered/Resolved]
  - Electrocardiogram T wave abnormal [Recovered/Resolved]
  - Myocardial necrosis marker increased [Recovered/Resolved]
  - Hypotension [Recovered/Resolved]
